FAERS Safety Report 10647177 (Version 3)
Quarter: 2015Q1

REPORT INFORMATION
  Report Type: Spontaneous
  Country: US (occurrence: US)
  Receive Date: 20141211
  Receipt Date: 20150312
  Transmission Date: 20150720
  Serious: No
  Sender: FDA-Public Use
  Company Number: US-INCYTE CORPORATION-2014IN002439

PATIENT
  Age: 70 Year
  Sex: Male

DRUGS (4)
  1. LORTAB [Concomitant]
     Active Substance: ACETAMINOPHEN\HYDROCODONE BITARTRATE
  2. JAKAFI [Suspect]
     Active Substance: RUXOLITINIB
     Dosage: 15 MG, BID
     Route: 048
     Dates: start: 20140704, end: 2014
  3. JAKAFI [Suspect]
     Active Substance: RUXOLITINIB
     Dosage: 15 MG, BID
     Route: 048
     Dates: start: 2014
  4. INSULIN [Concomitant]
     Active Substance: INSULIN NOS

REACTIONS (6)
  - Drug administration error [Unknown]
  - Anaemia [Unknown]
  - Abdominal discomfort [Unknown]
  - Gastric ulcer [Unknown]
  - Diarrhoea [Unknown]
  - Abdominal distension [Unknown]

NARRATIVE: CASE EVENT DATE: 20140823
